FAERS Safety Report 5247828-6 (Version None)
Quarter: 2007Q1

REPORT INFORMATION
  Report Type: 
  Country: None (occurrence: None)
  Receive Date: 20070227
  Receipt Date: 20070227
  Transmission Date: 20070707
  Serious: Yes (Life-Threatening, Hospitalization, Disabling, Other)
  Sender: FDA-Public Use
  Company Number: None

PATIENT
  Age: 40 Year
  Sex: Female
  Weight: 56.6996 kg

DRUGS (1)
  1. ELIDEL [Suspect]
     Indication: ECZEMA
     Dosage: SMALL AMOUNT OF CREAM ON EXCEM AS NEEDED 3X WEEK CUTANEOUS
     Route: 003
     Dates: start: 20050101, end: 20070101

REACTIONS (1)
  - DIFFUSE LARGE B-CELL LYMPHOMA [None]
